FAERS Safety Report 4745448-0 (Version None)
Quarter: 2005Q3

REPORT INFORMATION
  Report Type: 
  Country: None (occurrence: None)
  Receive Date: 20050812
  Receipt Date: 20050316
  Transmission Date: 20060218
  Serious: Yes (Other)
  Sender: FDA-Public Use
  Company Number: PHEH2005US03220

PATIENT
  Age: 69 Year
  Sex: Male

DRUGS (10)
  1. VISUDYNE [Suspect]
     Indication: MACULAR DEGENERATION
     Dosage: 12.2 MG DAILY IV
     Route: 042
     Dates: start: 20050207, end: 20050207
  2. KENALOG-40 [Suspect]
     Dosage: 4 MG DAILY EY
     Dates: start: 20050207, end: 20050207
  3. RANITIDINE HCL [Concomitant]
  4. PREVACID [Concomitant]
  5. LIPITOR [Concomitant]
  6. ALLOPURINOL [Concomitant]
  7. FLONASE [Concomitant]
  8. PULMICORT [Concomitant]
  9. MULTI-VITAMINS [Concomitant]
  10. FLUORESCEIN [Concomitant]

REACTIONS (3)
  - INTRAOCULAR PRESSURE INCREASED [None]
  - RETINAL DETACHMENT [None]
  - RETINAL HAEMORRHAGE [None]
